FAERS Safety Report 4438628-5 (Version None)
Quarter: 2004Q3

REPORT INFORMATION
  Report Type: 
  Country: None (occurrence: None)
  Receive Date: 20040728
  Receipt Date: 20040301
  Transmission Date: 20050211
  Serious: No
  Sender: FDA-Public Use
  Company Number: USA040360548

PATIENT
  Age: 11 Year
  Sex: Male

DRUGS (3)
  1. STRATTERA [Suspect]
     Indication: ATTENTION DEFICIT/HYPERACTIVITY DISORDER
     Dosage: 60 MG
     Dates: start: 20040225
  2. ADDERALL 20 [Concomitant]
  3. ZOLOFT [Concomitant]

REACTIONS (6)
  - ANXIETY [None]
  - EYE DISORDER [None]
  - FATIGUE [None]
  - MYDRIASIS [None]
  - PALLOR [None]
  - STOMACH DISCOMFORT [None]
